FAERS Safety Report 16107075 (Version 1)
Quarter: 2019Q1

REPORT INFORMATION
  Report Type: Spontaneous
  Country: FR (occurrence: FR)
  Receive Date: 20190322
  Receipt Date: 20190322
  Transmission Date: 20190418
  Serious: Yes (Death, Life-Threatening, Hospitalization)
  Sender: FDA-Public Use
  Company Number: FR-MYLANLABS-2019M1026429

PATIENT
  Age: 76 Year
  Sex: Male
  Weight: 60 kg

DRUGS (19)
  1. DOLIPRANE [Concomitant]
     Active Substance: ACETAMINOPHEN
     Indication: PROPHYLAXIS
     Dosage: 500 MILLIGRAM
     Route: 048
     Dates: start: 20160628
  2. DEXAMETHASONE. [Suspect]
     Active Substance: DEXAMETHASONE
     Indication: PLASMA CELL MYELOMA
     Dosage: 20 MILLIGRAM, QW
     Route: 041
     Dates: start: 20160701, end: 20160708
  3. DARATUMUMAB [Suspect]
     Active Substance: DARATUMUMAB
     Indication: PLASMA CELL MYELOMA
     Dosage: 940 MILLIGRAM, QW
     Route: 041
     Dates: start: 20160701, end: 20160701
  4. REVLIMID [Suspect]
     Active Substance: LENALIDOMIDE
     Indication: PLASMA CELL MYELOMA
     Dosage: 10MG
     Route: 048
     Dates: start: 20160701, end: 20160701
  5. OXYNORM [Concomitant]
     Active Substance: OXYCODONE HYDROCHLORIDE
     Indication: HYPERCALCAEMIA
     Dosage: UNK
     Route: 065
  6. INEXIUM                            /01479302/ [Concomitant]
     Active Substance: ESOMEPRAZOLE MAGNESIUM
     Indication: HYPERCALCAEMIA
     Dosage: UNK
     Route: 065
  7. DIFFU K [Concomitant]
     Active Substance: POTASSIUM CHLORIDE
     Indication: HYPOKALAEMIA
     Dosage: 2400 MILLIGRAM
     Route: 048
     Dates: start: 20160622
  8. JOSIR [Concomitant]
     Active Substance: TAMSULOSIN
     Indication: HYPERCALCAEMIA
     Dosage: UNK
     Route: 065
  9. MECIR [Concomitant]
     Active Substance: TAMSULOSIN HYDROCHLORIDE
     Indication: PROPHYLAXIS
     Dosage: 0.4 MILLIGRAM, QD
     Route: 048
     Dates: start: 20160622
  10. INNOHEP [Concomitant]
     Active Substance: TINZAPARIN SODIUM
     Indication: PROPHYLAXIS
     Dosage: .5 MILLILITER
     Route: 058
     Dates: start: 20160622
  11. REVLIMID [Suspect]
     Active Substance: LENALIDOMIDE
     Dosage: 105 MILLIGRAM, 28D CYCLE
     Route: 048
     Dates: start: 20160702, end: 20160708
  12. OXYCONTIN [Concomitant]
     Active Substance: OXYCODONE HYDROCHLORIDE
     Indication: HYPERCALCAEMIA
     Dosage: 20 MILLIGRAM
     Route: 065
  13. PRAVASTATIN. [Concomitant]
     Active Substance: PRAVASTATIN
     Indication: HYPERCALCAEMIA
     Dosage: UNK
     Route: 065
  14. DOLIPRANE [Concomitant]
     Active Substance: ACETAMINOPHEN
     Dosage: 3000 MILLIGRAM
     Route: 041
     Dates: start: 20160623
  15. SODIUM CHLORIDE. [Concomitant]
     Active Substance: SODIUM CHLORIDE
     Indication: DEHYDRATION
     Dosage: 500 MILLILITER
     Route: 041
     Dates: start: 20160623
  16. STAGID [Concomitant]
     Active Substance: METFORMIN PAMOATE
     Indication: HYPERCALCAEMIA
     Route: 065
  17. MOVICOL [Concomitant]
     Active Substance: POLYETHYLENE GLYCOL 3350\POTASSIUM CHLORIDE\SODIUM BICARBONATE\SODIUM CHLORIDE
     Indication: CONSTIPATION
     Dosage: 1 OTHER
     Route: 048
     Dates: start: 20160623
  18. IPERTEN [Concomitant]
     Active Substance: MANIDIPINE
     Indication: HYPERCALCAEMIA
     Dosage: UNK
     Route: 065
  19. SERESTA [Concomitant]
     Active Substance: OXAZEPAM
     Indication: PROPHYLAXIS
     Dosage: 10 MILLIGRAM
     Route: 048
     Dates: start: 20160623

REACTIONS (3)
  - Renal failure [Recovered/Resolved]
  - General physical health deterioration [Fatal]
  - Lymphocyte count decreased [Recovered/Resolved]

NARRATIVE: CASE EVENT DATE: 20160701
